FAERS Safety Report 6109259-6 (Version None)
Quarter: 2009Q1

REPORT INFORMATION
  Report Type: 
  Country: None (occurrence: None)
  Receive Date: 20090310
  Receipt Date: 20090302
  Transmission Date: 20090719
  Serious: Yes (Hospitalization)
  Sender: FDA-Public Use
  Company Number: BR-ABBOTT-09P-020-0502816-00

PATIENT
  Age: 18 Year
  Sex: Female
  Weight: 46 kg

DRUGS (7)
  1. HUMIRA [Suspect]
     Indication: CROHN'S DISEASE
     Route: 058
     Dates: start: 20080701, end: 20080801
  2. HUMIRA [Suspect]
     Route: 058
  3. MESALAZINE [Concomitant]
     Indication: CROHN'S DISEASE
     Route: 048
     Dates: start: 20070101
  4. PANTOPRAZOLE [Concomitant]
     Indication: PROPHYLAXIS AGAINST GASTROINTESTINAL ULCER
     Route: 048
     Dates: start: 20070101
  5. UNKNOWN CORTICOID THERAPY [Concomitant]
     Indication: UNEVALUABLE EVENT
     Route: 048
     Dates: start: 20070101
  6. APROFLOXACIN [Concomitant]
     Indication: CROHN'S DISEASE
     Route: 048
     Dates: start: 20070101
  7. ALPRAZOLAM [Concomitant]
     Indication: ANXIETY
     Route: 048
     Dates: start: 20080101

REACTIONS (9)
  - ARTHRITIS [None]
  - BONE PAIN [None]
  - CROHN'S DISEASE [None]
  - GASTROINTESTINAL MOTILITY DISORDER [None]
  - HEADACHE [None]
  - INFECTION [None]
  - INJECTION SITE MACULE [None]
  - INSOMNIA [None]
  - INTESTINAL STENOSIS [None]
